FAERS Safety Report 10556930 (Version 1)
Quarter: 2014Q4

REPORT INFORMATION
  Report Type: Spontaneous
  Country: JP (occurrence: JP)
  Receive Date: 20141031
  Receipt Date: 20141031
  Transmission Date: 20150529
  Serious: Yes (Other)
  Sender: FDA-Public Use
  Company Number: JP-ELI_LILLY_AND_COMPANY-JP201410012060

PATIENT
  Age: 81 Year
  Sex: Female
  Weight: 50 kg

DRUGS (7)
  1. ALIMTA [Suspect]
     Active Substance: PEMETREXED DISODIUM
     Indication: LUNG NEOPLASM MALIGNANT
     Dosage: 655 MG, UNK
     Route: 042
     Dates: start: 20141016, end: 20141016
  2. PANVITAN [Concomitant]
  3. ALLEGRA [Concomitant]
     Active Substance: FEXOFENADINE HYDROCHLORIDE
  4. GASTER [Concomitant]
     Active Substance: FAMOTIDINE
  5. DECADRAN [Concomitant]
  6. MUCOSTA [Concomitant]
     Active Substance: REBAMIPIDE
  7. CELECOX [Concomitant]
     Active Substance: CELECOXIB

REACTIONS (2)
  - Choking sensation [Recovering/Resolving]
  - Blood pressure increased [Unknown]

NARRATIVE: CASE EVENT DATE: 20141016
